FAERS Safety Report 9400300 (Version 2)
Quarter: 2018Q3

REPORT INFORMATION
  Report Type: Spontaneous
  Country: US (occurrence: US)
  Receive Date: 20130715
  Receipt Date: 20180828
  Transmission Date: 20181010
  Serious: Yes (Other)
  Sender: FDA-Public Use
  Company Number: US-ROCHE-1217299

PATIENT
  Age: 78 Year
  Sex: Female
  Weight: 49.03 kg

DRUGS (3)
  1. ALDARA [Concomitant]
     Active Substance: IMIQUIMOD
  2. ERIVEDGE [Suspect]
     Active Substance: VISMODEGIB
     Indication: BASAL CELL CARCINOMA
     Route: 048
     Dates: start: 20130215, end: 20130613
  3. ERIVEDGE [Suspect]
     Active Substance: VISMODEGIB
     Dosage: FOR 2 WEEKS
     Route: 048

REACTIONS (15)
  - Pharyngeal disorder [Not Recovered/Not Resolved]
  - Dysphagia [Unknown]
  - Ageusia [Unknown]
  - Appetite disorder [Not Recovered/Not Resolved]
  - Asthenia [Unknown]
  - Fatigue [Not Recovered/Not Resolved]
  - Arthralgia [Unknown]
  - Muscle spasms [Unknown]
  - Weight decreased [Not Recovered/Not Resolved]
  - Weight decreased [Unknown]
  - Decreased appetite [Not Recovered/Not Resolved]
  - Alopecia [Unknown]
  - Alopecia [Unknown]
  - Muscle spasms [Not Recovered/Not Resolved]
  - Dysgeusia [Not Recovered/Not Resolved]

NARRATIVE: CASE EVENT DATE: 20130215
